FAERS Safety Report 7888148-0 (Version None)
Quarter: 2011Q4

REPORT INFORMATION
  Report Type: 
  Country: None (occurrence: None)
  Receive Date: 20111103
  Receipt Date: 20111005
  Transmission Date: 20120403
  Serious: No
  Sender: FDA-Public Use
  Company Number: US-BAYER-2011-096049

PATIENT
  Sex: Female

DRUGS (1)
  1. MENOSTAR [Suspect]

REACTIONS (1)
  - BLOOD PRESSURE INCREASED [None]
